FAERS Safety Report 6193293-4 (Version None)
Quarter: 2009Q2

REPORT INFORMATION
  Report Type: 
  Country: None (occurrence: None)
  Receive Date: 20090518
  Receipt Date: 20090515
  Transmission Date: 20091009
  Serious: Yes (Life-Threatening)
  Sender: FDA-Public Use
  Company Number: BR-ASTRAZENECA-2009UW12589

PATIENT
  Age: 35 Year
  Sex: Male
  Weight: 78 kg

DRUGS (1)
  1. ATENOLOL [Suspect]
     Route: 048
     Dates: start: 20090302

REACTIONS (2)
  - ACUTE MYOCARDIAL INFARCTION [None]
  - HYPERCHOLESTEROLAEMIA [None]
